FAERS Safety Report 4433305-9 (Version None)
Quarter: 2004Q3

REPORT INFORMATION
  Report Type: 
  Country: None (occurrence: None)
  Receive Date: 20040824
  Receipt Date: 20040809
  Transmission Date: 20050211
  Serious: Yes (Hospitalization)
  Sender: FDA-Public Use
  Company Number: 04P-163-0269730-00

PATIENT
  Age: 60 Year
  Sex: Female
  Weight: 121.564 kg

DRUGS (7)
  1. HUMIRA [Suspect]
     Indication: RHEUMATOID ARTHRITIS
     Dosage: 40 MG, 1 IN 1 WK, SUBCUTANEOUS
     Route: 058
     Dates: start: 20030901, end: 20040710
  2. ESOMEPRAZOLE [Concomitant]
  3. SIMVASTATIN [Concomitant]
  4. DEXTROPROPOXYPHENE [Concomitant]
  5. MONTELUKAST [Concomitant]
  6. METHOTREXATE [Concomitant]
  7. FOLIC ACID [Concomitant]

REACTIONS (9)
  - BRONCHITIS [None]
  - ERUCTATION [None]
  - HEPATIC ENZYME INCREASED [None]
  - JOINT LOCK [None]
  - PERICARDIAL EFFUSION [None]
  - PULMONARY FIBROSIS [None]
  - SINUSITIS [None]
  - VENTRICULAR HYPERTROPHY [None]
  - VOMITING [None]
